FAERS Safety Report 9777244 (Version 1)
Quarter: 2013Q4

REPORT INFORMATION
  Report Type: Spontaneous
  Country: US (occurrence: US)
  Receive Date: 20131221
  Receipt Date: 20131221
  Transmission Date: 20140711
  Serious: No
  Sender: FDA-Public Use
  Company Number: US-B.I. PHARMACEUTICALS,INC./RIDGEFIELD-2013-BI-41395BP

PATIENT
  Age: 74 Year
  Sex: Female
  Weight: 28 kg

DRUGS (9)
  1. SPIRIVA [Suspect]
     Indication: CHRONIC OBSTRUCTIVE PULMONARY DISEASE
     Dosage: 18 MCG
     Route: 055
     Dates: start: 2007
  2. THEOPHYLLINE [Concomitant]
     Indication: CHRONIC OBSTRUCTIVE PULMONARY DISEASE
     Dosage: 600 MG
     Route: 048
  3. DILTIAZEM CD [Concomitant]
     Indication: CARDIAC DISORDER
     Dosage: 120 MG
     Route: 048
  4. KLOR-CON [Concomitant]
     Dosage: 1 ANZ
     Route: 048
  5. WARFARIN [Concomitant]
     Indication: THROMBOSIS
     Dosage: 2.5 MG
     Route: 048
  6. TYLENOL WITH CODEINE [Concomitant]
     Indication: ARTHRITIS
     Dosage: 1 ANZ
     Route: 048
  7. SINGULAIR [Concomitant]
     Indication: ASTHMA
     Dosage: 1 ANZ
     Route: 048
  8. FUROSEMIDE [Concomitant]
     Dosage: 20 MG
     Route: 048
  9. NOVOLIN N [Concomitant]
     Indication: DIABETES MELLITUS
     Dosage: 30 U
     Route: 058

REACTIONS (1)
  - Dyspnoea [Not Recovered/Not Resolved]
